FAERS Safety Report 6355779-9 (Version None)
Quarter: 2009Q3

REPORT INFORMATION
  Report Type: 
  Country: None (occurrence: None)
  Receive Date: 20090911
  Receipt Date: 20090911
  Transmission Date: 20100115
  Serious: No
  Sender: FDA-Public Use
  Company Number: None

PATIENT
  Age: 74 Year
  Sex: Male
  Weight: 73.5 kg

DRUGS (1)
  1. RITUXIMAB [Suspect]
     Indication: CHEMOTHERAPY
     Dosage: 150MG / HOUR IV
     Route: 042
     Dates: start: 20090727

REACTIONS (1)
  - URTICARIA [None]
